FAERS Safety Report 8001322 (Version 4)
Quarter: 2012Q4

REPORT INFORMATION
  Report Type: 
  Country: DE (occurrence: DE)
  Receive Date: 20110622
  Receipt Date: 20120912
  Transmission Date: 20130627
  Serious: Yes (Death, Hospitalization, Other)
  Sender: FDA-Public Use
  Company Number: PHHY2009DE68653

PATIENT
  Age: 81 Year
  Sex: Female
  Weight: 77 kg

DRUGS (11)
  1. SANDOSTATIN LAR [Suspect]
     Indication: PANCREATIC NEUROENDOCRINE TUMOUR
     Dosage: 30 mg, UNK
     Route: 030
     Dates: start: 20080101
  2. FUROSEMID [Suspect]
     Dosage: 40 mg, daily
     Dates: start: 20090119, end: 20091220
  3. HAEMOPROTECT 50 [Suspect]
     Dosage: 100 mg, daily
     Dates: start: 20091218, end: 20091220
  4. BERLINSULIN H NORMAL [Suspect]
     Dosage: 10-6-4 I.U.
     Route: 058
     Dates: start: 20060502, end: 20091220
  5. LOPEDIUM [Concomitant]
     Dosage: 1 DF, QD
     Route: 065
  6. METAMIZOLE [Concomitant]
     Dosage: UNK UKN, PRN
     Route: 065
  7. PANGROL [Concomitant]
     Dosage: 3 UKN, BID
     Route: 065
  8. LOPERAMIDE [Concomitant]
     Dosage: 2 UKN, QD
     Route: 065
     Dates: start: 20091019, end: 20091220
  9. KALITRANS [Concomitant]
     Dosage: 3 UKN, QD2SDO
     Route: 065
  10. FAMOTIDINE [Concomitant]
     Dosage: 40 mg, daily
     Dates: start: 20060223, end: 20091220
  11. CALCILAC [Concomitant]
     Dates: start: 20090908, end: 20091220

REACTIONS (5)
  - Oesophageal haemorrhage [Fatal]
  - Vaginal haemorrhage [Unknown]
  - Back pain [Unknown]
  - Diarrhoea [Unknown]
  - Blood glucose decreased [Unknown]
